FAERS Safety Report 9786598 (Version 2)
Quarter: 2014Q1

REPORT INFORMATION
  Report Type: Spontaneous
  Country: US (occurrence: US)
  Receive Date: 20131227
  Receipt Date: 20140205
  Transmission Date: 20141002
  Serious: No
  Sender: FDA-Public Use
  Company Number: US-PFIZER INC-2013371364

PATIENT
  Age: 49 Year
  Sex: Female
  Weight: 66.21 kg

DRUGS (3)
  1. PRISTIQ [Suspect]
     Indication: ANXIETY
     Dosage: UNK, DAILY AT BED TIME
     Dates: start: 20131224
  2. LORAZEPAM [Suspect]
     Indication: ANXIETY
     Dosage: 0.5 MG, AS NEEDED
     Dates: start: 201312
  3. SEROQUEL [Concomitant]
     Indication: SLEEP DISORDER
     Dosage: 150 MG, DAILY

REACTIONS (2)
  - Disorientation [Not Recovered/Not Resolved]
  - Hyperhidrosis [Unknown]
